FAERS Safety Report 9915089 (Version 2)
Quarter: 2014Q2

REPORT INFORMATION
  Report Type: Spontaneous
  Country: US (occurrence: US)
  Receive Date: 20140220
  Receipt Date: 20140408
  Transmission Date: 20141212
  Serious: Yes (Death, Hospitalization, Other)
  Sender: FDA-Public Use
  Company Number: US-GILEAD-2014-0094851

PATIENT
  Age: 24 Year
  Sex: Female

DRUGS (1)
  1. CAYSTON [Suspect]
     Indication: CYSTIC FIBROSIS
     Dosage: 84 ML, UNK
     Route: 055
     Dates: start: 20120919, end: 20131209

REACTIONS (7)
  - Sepsis [Fatal]
  - Cardiac failure [Fatal]
  - Respiratory failure [Fatal]
  - Infective pulmonary exacerbation of cystic fibrosis [Unknown]
  - Renal failure [Unknown]
  - Deep vein thrombosis [Unknown]
  - Pulmonary embolism [Unknown]
